FAERS Safety Report 6511130-2 (Version None)
Quarter: 2009Q4

REPORT INFORMATION
  Report Type: 
  Country: None (occurrence: None)
  Receive Date: 20091222
  Receipt Date: 20091221
  Transmission Date: 20100525
  Serious: Yes (Other)
  Sender: FDA-Public Use
  Company Number: US-KINGPHARMUSA00001-K200901357

PATIENT
  Age: 25 Year
  Sex: Female

DRUGS (5)
  1. EMBEDA [Suspect]
     Indication: PAIN
     Dosage: 20 MG, UNK
     Dates: start: 20090930, end: 20091001
  2. NAPROXEN SODIUM [Concomitant]
  3. VITAMIN B6 [Concomitant]
  4. ASCORBIC ACID [Concomitant]
  5. MULTI-VITAMIN [Concomitant]

REACTIONS (4)
  - CONVULSION [None]
  - CYANOSIS CENTRAL [None]
  - DYSKINESIA [None]
  - MUSCULOSKELETAL STIFFNESS [None]
